FAERS Safety Report 9544013 (Version 1)
Quarter: 2013Q3

REPORT INFORMATION
  Report Type: Spontaneous
  Country: BR (occurrence: BR)
  Receive Date: 20130923
  Receipt Date: 20130923
  Transmission Date: 20140515
  Serious: Yes (Other)
  Sender: FDA-Public Use
  Company Number: BR-009507513-1301BRA004649

PATIENT
  Age: 38 Year
  Sex: Female
  Weight: 73 kg

DRUGS (6)
  1. MERCILON [Suspect]
     Indication: CONTRACEPTION
     Dosage: 150/20 MICROGRAM, QD
     Route: 048
     Dates: start: 2008, end: 20121231
  2. FLUOXETINE [Concomitant]
     Indication: DEPRESSION
     Dosage: 20 MG, QD
     Route: 048
     Dates: start: 2010
  3. OLCADIL [Concomitant]
     Indication: SEDATION
     Dosage: 2 MG, QD
     Route: 048
     Dates: start: 2003
  4. HYDROCHLOROTHIAZIDE [Concomitant]
     Indication: HYPERTENSION
     Dosage: 25 MG, QD
     Route: 048
     Dates: start: 2007
  5. ATENOLOL [Concomitant]
     Indication: HYPERTENSION
     Dosage: 50 MG, QD
     Route: 048
     Dates: start: 2010
  6. ARADOIS [Concomitant]
     Indication: HYPERTENSION
     Dosage: 50 MG, QD
     Route: 048
     Dates: start: 2010

REACTIONS (5)
  - Internal fixation of fracture [Recovered/Resolved]
  - Menstrual disorder [Recovered/Resolved]
  - Pain in extremity [Recovered/Resolved]
  - Abnormal withdrawal bleeding [Not Recovered/Not Resolved]
  - Drug administration error [Unknown]
